FAERS Safety Report 13192788 (Version 2)
Quarter: 2017Q1

REPORT INFORMATION
  Report Type: Report from Study
  Country: JP (occurrence: JP)
  Receive Date: 20170207
  Receipt Date: 20170331
  Transmission Date: 20170428
  Serious: Yes (Life-Threatening, Hospitalization)
  Sender: FDA-Public Use
  Company Number: JP-ACTELION-A-CH2015-124242

PATIENT
  Age: 18 Year
  Sex: Male

DRUGS (37)
  1. EPOPROSTENOL ACT [Suspect]
     Active Substance: EPOPROSTENOL
     Dosage: 121 NG/KG, PER MIN
     Route: 042
     Dates: start: 20141113
  2. OXYGEN. [Concomitant]
     Active Substance: OXYGEN
  3. THYRADIN [Concomitant]
     Active Substance: LEVOTHYROXINE
  4. AMBRISENTAN [Concomitant]
     Active Substance: AMBRISENTAN
  5. FUROSEMIDE. [Concomitant]
     Active Substance: FUROSEMIDE
  6. BISOPROLOL [Concomitant]
     Active Substance: BISOPROLOL
  7. EPOPROSTENOL ACT [Suspect]
     Active Substance: EPOPROSTENOL
     Dosage: 76 NG/KG, PER MIN
     Route: 042
     Dates: start: 20140808
  8. LOPERAMIDE [Concomitant]
     Active Substance: LOPERAMIDE
  9. LORAZEPAM. [Concomitant]
     Active Substance: LORAZEPAM
  10. PREDNISOLONE. [Concomitant]
     Active Substance: PREDNISOLONE
     Dosage: 5 MG, UNK
     Dates: start: 20150727
  11. EPOPROSTENOL ACT [Suspect]
     Active Substance: EPOPROSTENOL
     Dosage: 93 NG/KG, PER MIN
     Route: 042
     Dates: start: 20140919
  12. EPOPROSTENOL ACT [Suspect]
     Active Substance: EPOPROSTENOL
     Dosage: 135 NG/KG, PER MIN
     Route: 042
     Dates: start: 20141219
  13. FERROMIA [Concomitant]
     Active Substance: FERROUS CITRATE
  14. SERTRALINE [Concomitant]
     Active Substance: SERTRALINE HYDROCHLORIDE
  15. OPSUMIT [Concomitant]
     Active Substance: MACITENTAN
  16. TADALAFIL [Concomitant]
     Active Substance: TADALAFIL
  17. BIFIDOBACTERIUM BIFIDUM [Concomitant]
     Active Substance: BIFIDOBACTERIUM BIFIDUM
  18. ESOMEPRAZOLE [Concomitant]
     Active Substance: ESOMEPRAZOLE
  19. TOLVAPTAN [Concomitant]
     Active Substance: TOLVAPTAN
  20. EPOPROSTENOL ACT [Suspect]
     Active Substance: EPOPROSTENOL
     Dosage: 123 NG/KG, PER MIN
     Route: 042
     Dates: start: 20141119
  21. EPOPROSTENOL ACT [Suspect]
     Active Substance: EPOPROSTENOL
     Dosage: 144 NG/KG, PER MIN
     Route: 042
     Dates: start: 20150107
  22. SPIRONOLACTONE. [Concomitant]
     Active Substance: SPIRONOLACTONE
  23. BERBERINE HYDROCHLORIDE [Concomitant]
     Active Substance: BERBERINE
  24. PREDNISOLONE. [Concomitant]
     Active Substance: PREDNISOLONE
     Dosage: 10 MG, UNK
     Dates: start: 20150727
  25. NEXAVAR [Concomitant]
     Active Substance: SORAFENIB
  26. EPOPROSTENOL ACT [Suspect]
     Active Substance: EPOPROSTENOL
     Indication: PULMONARY ARTERIAL HYPERTENSION
     Dosage: UNK
     Route: 042
     Dates: start: 20140619, end: 20140807
  27. EPOPROSTENOL ACT [Suspect]
     Active Substance: EPOPROSTENOL
     Dosage: 109 NG/KG, PER MIN
     Route: 042
     Dates: start: 20141019
  28. EPOPROSTENOL ACT [Suspect]
     Active Substance: EPOPROSTENOL
     Dosage: 147 NG/KG, PER MIN
     Route: 042
     Dates: start: 20150119
  29. EPOPROSTENOL ACT [Suspect]
     Active Substance: EPOPROSTENOL
     Dosage: 162 NG/KG, PER MIN
     Route: 042
     Dates: start: 20150219
  30. BROTIZOLAM [Concomitant]
     Active Substance: BROTIZOLAM
  31. PREDNISOLONE. [Concomitant]
     Active Substance: PREDNISOLONE
     Dosage: 20 MG, UNK
  32. BROMAZEPAM [Concomitant]
     Active Substance: BROMAZEPAM
  33. EPOPROSTENOL ACT [Suspect]
     Active Substance: EPOPROSTENOL
     Dosage: UNK
     Route: 042
     Dates: start: 20150615
  34. EPOPROSTENOL ACT [Suspect]
     Active Substance: EPOPROSTENOL
     Dosage: 168 NG/KG, PER MIN
     Route: 042
     Dates: start: 20150719
  35. POTASSIUM CHLORATE [Concomitant]
     Active Substance: POTASSIUM CHLORATE
  36. SILDENAFIL. [Concomitant]
     Active Substance: SILDENAFIL
  37. THYROID GLAND [Concomitant]

REACTIONS (14)
  - Right ventricular failure [Unknown]
  - Ascites [Recovering/Resolving]
  - Myocarditis [Recovered/Resolved]
  - Oropharyngeal discomfort [Recovering/Resolving]
  - Concomitant disease aggravated [Unknown]
  - Cardiac failure [Recovering/Resolving]
  - Transfusion [Recovered/Resolved]
  - Goitre [Recovering/Resolving]
  - Device occlusion [Recovered/Resolved]
  - Product deposit [Recovered/Resolved]
  - Anaemia [Recovering/Resolving]
  - Device related infection [Recovering/Resolving]
  - Thyroiditis [Recovering/Resolving]
  - Thyrotoxic crisis [Recovering/Resolving]

NARRATIVE: CASE EVENT DATE: 20140808
